FAERS Safety Report 15587605 (Version 1)
Quarter: 2018Q4

REPORT INFORMATION
  Report Type: Spontaneous
  Country: US (occurrence: US)
  Receive Date: 20181101
  Receipt Date: 20181101
  Transmission Date: 20190205
  Serious: No
  Sender: FDA-Public Use
  Company Number: None

PATIENT
  Sex: Female

DRUGS (1)
  1. EPCLUSA [Suspect]
     Active Substance: SOFOSBUVIR\VELPATASVIR
     Indication: CHRONIC HEPATITIS C
     Dosage: 400/100MG DAILY PO
     Route: 048
     Dates: start: 20180817

REACTIONS (5)
  - Ocular hyperaemia [None]
  - Eye swelling [None]
  - Eye irritation [None]
  - Eye discharge [None]
  - Eyelid margin crusting [None]
